FAERS Safety Report 24550952 (Version 1)
Quarter: 2024Q4

REPORT INFORMATION
  Report Type: Report from Study
  Country: IT (occurrence: IT)
  Receive Date: 20241025
  Receipt Date: 20241025
  Transmission Date: 20250115
  Serious: Yes (Other)
  Sender: ALEXION PHARMACEUTICALS
  Company Number: IT-ASTRAZENECA-202410GLO006356IT

PATIENT

DRUGS (4)
  1. FASENRA [Suspect]
     Active Substance: BENRALIZUMAB
     Indication: Asthma
     Dosage: 30 MG BENRALIZUMAB EVERY MONTH FOR THE FIRST 3 ADMINISTRATIONS AND THEN EVERY 2 MONTHS
  2. FASENRA [Suspect]
     Active Substance: BENRALIZUMAB
     Dosage: 30 MG BENRALIZUMAB EVERY MONTH FOR THE FIRST 3 ADMINISTRATIONS AND THEN EVERY 2 MONTHS
  3. FASENRA [Suspect]
     Active Substance: BENRALIZUMAB
     Dosage: 30 MG BENRALIZUMAB EVERY MONTH FOR THE FIRST 3 ADMINISTRATIONS AND THEN EVERY 2 MONTHS
  4. FASENRA [Suspect]
     Active Substance: BENRALIZUMAB
     Dosage: 30 MG BENRALIZUMAB EVERY MONTH FOR THE FIRST 3 ADMINISTRATIONS AND THEN EVERY 2 MONTHS

REACTIONS (4)
  - Cellulitis orbital [Unknown]
  - Blindness unilateral [Unknown]
  - Sinusitis [Unknown]
  - Abscess [Unknown]
